FAERS Safety Report 7360535-9 (Version None)
Quarter: 2011Q1

REPORT INFORMATION
  Report Type: 
  Country: None (occurrence: None)
  Receive Date: 20110318
  Receipt Date: 20110311
  Transmission Date: 20110831
  Serious: No
  Sender: FDA-Public Use
  Company Number: US-PFIZER INC-2011054601

PATIENT
  Sex: Male
  Weight: 82 kg

DRUGS (5)
  1. GUAIFENESIN W/DEXTROMETHORPHAN [Concomitant]
     Dosage: UNK
  2. NAVANE [Suspect]
     Indication: SCHIZOPHRENIA
     Dosage: 20 MG, 2X/DAY
     Route: 048
     Dates: start: 19900101
  3. NAVANE [Suspect]
     Indication: TOURETTE'S DISORDER
  4. COGENTIN [Concomitant]
     Dosage: 1 MG, 2X/DAY
  5. NAVANE [Suspect]
     Indication: ELECTROLYTE IMBALANCE

REACTIONS (1)
  - PSYCHOMOTOR HYPERACTIVITY [None]
